FAERS Safety Report 11642417 (Version 1)
Quarter: 2015Q4

REPORT INFORMATION
  Report Type: Spontaneous
  Country: GB (occurrence: GB)
  Receive Date: 20151019
  Receipt Date: 20151019
  Transmission Date: 20160304
  Serious: Yes (Other)
  Sender: FDA-Public Use
  Company Number: PHFR2015GB007742

PATIENT
  Sex: Male

DRUGS (1)
  1. CLOZARIL [Suspect]
     Active Substance: CLOZAPINE
     Indication: SCHIZOPHRENIA
     Route: 048
     Dates: start: 20150921

REACTIONS (5)
  - Weight decreased [Unknown]
  - Haematochezia [Unknown]
  - Neoplasm malignant [Unknown]
  - Malnutrition [Unknown]
  - Blood alkaline phosphatase increased [Unknown]
